FAERS Safety Report 13269479 (Version 1)
Quarter: 2017Q1

REPORT INFORMATION
  Report Type: Spontaneous
  Country: US (occurrence: US)
  Receive Date: 20170224
  Receipt Date: 20170224
  Transmission Date: 20170428
  Serious: Yes (Other)
  Sender: FDA-Public Use
  Company Number: US-GE HEALTHCARE LIFE SCIENCES-2017CSU000125

PATIENT
  Age: 20 Year
  Sex: Male

DRUGS (7)
  1. OMNIPAQUE [Suspect]
     Active Substance: IOHEXOL
     Indication: POST-TRAUMATIC NECK SYNDROME
  2. OMNIPAQUE [Suspect]
     Active Substance: IOHEXOL
     Indication: DIZZINESS
  3. OMNIPAQUE [Suspect]
     Active Substance: IOHEXOL
     Indication: CAROTID ARTERY DISSECTION
  4. IBUPROFEN. [Concomitant]
     Active Substance: IBUPROFEN
     Indication: PRODUCT USED FOR UNKNOWN INDICATION
  5. OMNIPAQUE [Suspect]
     Active Substance: IOHEXOL
     Indication: VISION BLURRED
  6. OMNIPAQUE [Suspect]
     Active Substance: IOHEXOL
     Indication: FALL
     Dosage: 100 ML, SINGLE
     Route: 042
     Dates: start: 20170220, end: 20170220
  7. OMNIPAQUE [Suspect]
     Active Substance: IOHEXOL
     Indication: HEADACHE

REACTIONS (1)
  - Contrast media reaction [Recovered/Resolved]

NARRATIVE: CASE EVENT DATE: 20170220
